FAERS Safety Report 9323639 (Version 2)
Quarter: 2013Q2

REPORT INFORMATION
  Report Type: Spontaneous
  Country: DK (occurrence: DK)
  Receive Date: 20130603
  Receipt Date: 20130618
  Transmission Date: 20140414
  Serious: Yes (Other)
  Sender: FDA-Public Use
  Company Number: DK-SANOFI-AVENTIS-2013SA053022

PATIENT
  Sex: Female

DRUGS (13)
  1. DOCETAXEL [Suspect]
     Indication: BREAST CANCER
     Route: 065
  2. HERCEPTIN [Suspect]
     Indication: BREAST CANCER
     Route: 065
     Dates: start: 201012
  3. HERCEPTIN [Suspect]
     Indication: BREAST CANCER
     Route: 065
     Dates: start: 201104
  4. HERCEPTIN [Suspect]
     Indication: BREAST CANCER
     Route: 065
     Dates: start: 201210
  5. XELODA [Suspect]
     Indication: BREAST CANCER
     Route: 065
  6. VINORELBINE [Suspect]
     Indication: BREAST CANCER
     Route: 065
  7. EPIRUBICIN [Suspect]
     Indication: BREAST CANCER
     Route: 065
  8. LAPATINIB [Suspect]
     Indication: BREAST CANCER
     Route: 065
  9. GEMCITABINE [Suspect]
     Indication: BREAST CANCER
     Route: 065
  10. TAXOL [Suspect]
     Indication: BREAST CANCER
     Route: 065
  11. ZOLADEX [Suspect]
     Indication: BREAST CANCER
     Route: 065
  12. FEMAR [Suspect]
     Indication: BREAST CANCER
     Route: 065
  13. TAMOXIFEN [Concomitant]

REACTIONS (3)
  - Disease progression [Unknown]
  - Pleural effusion [Unknown]
  - Pericarditis [Unknown]
